FAERS Safety Report 13565189 (Version 2)
Quarter: 2017Q2

REPORT INFORMATION
  Report Type: Spontaneous
  Country: JP (occurrence: JP)
  Receive Date: 20170519
  Receipt Date: 20170605
  Transmission Date: 20170830
  Serious: Yes (Other)
  Sender: FDA-Public Use
  Company Number: JP-009507513-1705JPN007849

PATIENT
  Age: 30 Year
  Sex: Female
  Weight: 52 kg

DRUGS (21)
  1. ISONIAZID. [Concomitant]
     Active Substance: ISONIAZID
     Dosage: 200 MG, QD
     Route: 065
  2. PYRAZINAMIDE. [Concomitant]
     Active Substance: PYRAZINAMIDE
     Indication: DISSEMINATED TUBERCULOSIS
  3. MEROPENEM. [Concomitant]
     Active Substance: MEROPENEM
     Indication: MENINGITIS TUBERCULOUS
     Dosage: 6 G, QD
     Route: 065
  4. DEXAMETHASONE. [Suspect]
     Active Substance: DEXAMETHASONE
     Indication: MENINGITIS TUBERCULOUS
     Dosage: 19.6 MG, UNK
     Route: 065
  5. ASPIRIN. [Concomitant]
     Active Substance: ASPIRIN
     Indication: NONINFECTIVE ENCEPHALITIS
     Dosage: 100 MG, UNK
     Route: 065
  6. ISONIAZID. [Concomitant]
     Active Substance: ISONIAZID
     Dosage: 500 MG, UNK
     Route: 065
  7. ISONIAZID. [Concomitant]
     Active Substance: ISONIAZID
     Dosage: 100 MG, 3 IN 1 WK
     Route: 037
  8. LEVOFLOXACIN. [Concomitant]
     Active Substance: LEVOFLOXACIN
     Indication: MENINGITIS TUBERCULOUS
     Dosage: 500 MG, QD
     Route: 065
  9. LEVOFLOXACIN. [Concomitant]
     Active Substance: LEVOFLOXACIN
     Indication: DISSEMINATED TUBERCULOSIS
  10. STREPTOMYCIN [Concomitant]
     Active Substance: STREPTOMYCIN\STREPTOMYCIN SULFATE
     Indication: DISSEMINATED TUBERCULOSIS
     Dosage: 1 G, QD
     Route: 065
  11. HEPARIN [Concomitant]
     Active Substance: HEPARIN SODIUM
     Indication: CEREBRAL INFARCTION
     Dosage: 10000 IU, UNK
     Route: 065
  12. DEXAMETHASONE. [Suspect]
     Active Substance: DEXAMETHASONE
     Indication: DISSEMINATED TUBERCULOSIS
  13. ISONIAZID. [Concomitant]
     Active Substance: ISONIAZID
     Dosage: 300 MG, UNK
     Route: 065
  14. ETHAMBUTOL [Concomitant]
     Active Substance: ETHAMBUTOL HYDROCHLORIDE
     Indication: DISSEMINATED TUBERCULOSIS
  15. STREPTOMYCIN [Concomitant]
     Active Substance: STREPTOMYCIN\STREPTOMYCIN SULFATE
     Indication: MENINGITIS TUBERCULOUS
  16. ISONIAZID. [Concomitant]
     Active Substance: ISONIAZID
     Dosage: 100 MG, 1 IN 1 WK
     Route: 037
  17. RIFAMPIN. [Concomitant]
     Active Substance: RIFAMPIN
     Indication: MENINGITIS TUBERCULOUS
     Dosage: 450 MG, QD
     Route: 065
  18. RIFAMPIN. [Concomitant]
     Active Substance: RIFAMPIN
     Indication: DISSEMINATED TUBERCULOSIS
  19. ETHAMBUTOL [Concomitant]
     Active Substance: ETHAMBUTOL HYDROCHLORIDE
     Indication: MENINGITIS TUBERCULOUS
     Dosage: 750 MG, QD
     Route: 065
  20. PYRAZINAMIDE. [Concomitant]
     Active Substance: PYRAZINAMIDE
     Indication: MENINGITIS TUBERCULOUS
     Dosage: 1.2 G, QD
     Route: 065
  21. ASPIRIN. [Concomitant]
     Active Substance: ASPIRIN
     Indication: TRANSVERSE SINUS THROMBOSIS

REACTIONS (2)
  - Stillbirth [Recovered/Resolved]
  - Maternal exposure during pregnancy [Unknown]
